FAERS Safety Report 11375432 (Version 5)
Quarter: 2017Q2

REPORT INFORMATION
  Report Type: Spontaneous
  Country: US (occurrence: US)
  Receive Date: 20150813
  Receipt Date: 20170503
  Transmission Date: 20170829
  Serious: Yes (Hospitalization, Other)
  Sender: FDA-Public Use
  Company Number: US-BAYER-2015-395260

PATIENT
  Age: 26 Year
  Sex: Female

DRUGS (3)
  1. MIRENA [Suspect]
     Active Substance: LEVONORGESTREL
     Indication: CONTRACEPTION
     Dosage: 20 MCG/24HR, CONT
     Route: 015
     Dates: start: 200904, end: 20090417
  2. MISOPROSTOL. [Concomitant]
     Active Substance: MISOPROSTOL
  3. MIRENA [Suspect]
     Active Substance: LEVONORGESTREL
     Indication: CONTRACEPTION
     Dosage: 20 MCG/24HR, CONT
     Route: 015
     Dates: start: 20120426, end: 20140606

REACTIONS (25)
  - Uterine perforation [None]
  - Pregnancy with contraceptive device [None]
  - Amniotic cavity infection [None]
  - Injury [None]
  - Complication of device removal [None]
  - Device difficult to use [None]
  - Nausea [None]
  - Depressed mood [None]
  - Uterine perforation [None]
  - Grief reaction [None]
  - Marital problem [None]
  - Fatigue [None]
  - Influenza like illness [None]
  - Psychological trauma [None]
  - Device breakage [None]
  - Pyrexia [None]
  - Somatic symptom disorder [None]
  - Malaise [None]
  - Post-traumatic stress disorder [None]
  - Haemorrhage in pregnancy [None]
  - Pain [None]
  - Emotional distress [None]
  - Drug ineffective [None]
  - Anxiety [None]
  - Depression [None]

NARRATIVE: CASE EVENT DATE: 20090417
